FAERS Safety Report 4412953-6 (Version None)
Quarter: 2004Q3

REPORT INFORMATION
  Report Type: 
  Country: None (occurrence: None)
  Receive Date: 20040802
  Receipt Date: 20030930
  Transmission Date: 20050211
  Serious: No
  Sender: FDA-Public Use
  Company Number: US-GLAXOSMITHKLINE-A0428069A

PATIENT
  Sex: Female

DRUGS (1)
  1. ZANTAC [Suspect]
     Dosage: .25TSP TWICE PER DAY
     Route: 048
     Dates: start: 20030922

REACTIONS (2)
  - ASPIRATION [None]
  - REGURGITATION OF FOOD [None]
